FAERS Safety Report 23067461 (Version 2)
Quarter: 2023Q4

REPORT INFORMATION
  Report Type: Spontaneous
  Country: EG (occurrence: EG)
  Receive Date: 20231016
  Receipt Date: 20231027
  Transmission Date: 20240110
  Serious: Yes (Other)
  Sender: FDA-Public Use
  Company Number: EG-NOVOPROD-1124788

PATIENT
  Sex: Female
  Weight: 65 kg

DRUGS (5)
  1. INSULIN HUMAN [Suspect]
     Active Substance: INSULIN HUMAN
     Indication: Diabetes mellitus
     Dosage: 35 IU, QD  (20U MORNING AND 15 U NIGHT
     Route: 058
  2. INSULIN HUMAN [Suspect]
     Active Substance: INSULIN HUMAN
     Dosage: SOMETIMES 40U DEPENDS ON BGL)
     Route: 058
  3. INSULIN HUMAN [Suspect]
     Active Substance: INSULIN HUMAN
     Dosage: 50U MORNING AND 20 U NIGHT
     Route: 058
  4. BENFOTIAMINE\CYANOCOBALAMIN\PYRIDOXINE HYDROCHLORIDE [Concomitant]
     Active Substance: BENFOTIAMINE\CYANOCOBALAMIN\PYRIDOXINE HYDROCHLORIDE
     Indication: Vitamin supplementation
     Dosage: UNK
  5. FISH OIL [Concomitant]
     Active Substance: FISH OIL
     Dosage: UNK

REACTIONS (7)
  - Diabetic hyperglycaemic coma [Not Recovered/Not Resolved]
  - Eye disorder [Not Recovered/Not Resolved]
  - Injection site oedema [Unknown]
  - Injection site inflammation [Unknown]
  - Injection site discolouration [Not Recovered/Not Resolved]
  - Lack of injection site rotation [Unknown]
  - Wrong technique in product usage process [Unknown]
